FAERS Safety Report 9259564 (Version 2)
Quarter: 2013Q3

REPORT INFORMATION
  Report Type: Spontaneous
  Country: US (occurrence: US)
  Receive Date: 20130429
  Receipt Date: 20130705
  Transmission Date: 20140515
  Serious: Yes (Hospitalization, Other)
  Sender: FDA-Public Use
  Company Number: US-ASTRAZENECA-2013SE27487

PATIENT
  Age: 28268 Day
  Sex: Female

DRUGS (10)
  1. NEXIUM [Suspect]
     Indication: GASTROOESOPHAGEAL REFLUX DISEASE
     Route: 048
     Dates: start: 20071220, end: 201210
  2. NEXIUM [Suspect]
     Indication: GASTROOESOPHAGEAL REFLUX DISEASE
     Route: 048
     Dates: start: 20060304
  3. TUMS [Concomitant]
  4. RAMIPRIL [Concomitant]
     Indication: BLOOD PRESSURE ABNORMAL
  5. HYDROCHLOROTHIAZIDE [Concomitant]
     Indication: BLOOD PRESSURE ABNORMAL
  6. AMLODIPINE BESYLATE [Concomitant]
     Indication: BLOOD PRESSURE ABNORMAL
  7. SIMVASTATIN [Concomitant]
  8. MULTIVITAMIN [Concomitant]
  9. GLUCOSAMINE [Concomitant]
     Indication: ARTHROPATHY
  10. CRESTOR [Concomitant]
     Route: 048
     Dates: start: 20070605

REACTIONS (15)
  - Upper limb fracture [Unknown]
  - Lower limb fracture [Unknown]
  - Humerus fracture [Unknown]
  - Cervical vertebral fracture [Unknown]
  - Fall [Unknown]
  - Ankle fracture [Unknown]
  - Patella fracture [Unknown]
  - Osteoporosis [Unknown]
  - Bone density decreased [Unknown]
  - Multiple fractures [Unknown]
  - Arthritis [Unknown]
  - Osteopenia [Unknown]
  - Synovial cyst [Unknown]
  - Osteoarthritis [Unknown]
  - Ligament sprain [Unknown]
